FAERS Safety Report 12597359 (Version 1)
Quarter: 2016Q3

REPORT INFORMATION
  Report Type: Spontaneous
  Country: US (occurrence: None)
  Receive Date: 20160726
  Receipt Date: 20160726
  Transmission Date: 20161109
  Serious: Yes (Life-Threatening, Hospitalization, Disabling)
  Sender: FDA-Public Use
  Company Number: None

PATIENT
  Age: 50 Year
  Sex: Male
  Weight: 70.31 kg

DRUGS (12)
  1. TYLENOL [Concomitant]
     Active Substance: ACETAMINOPHEN
  2. MIRALAX [Concomitant]
     Active Substance: POLYETHYLENE GLYCOL 3350
  3. PREVACID [Concomitant]
     Active Substance: LANSOPRAZOLE
  4. ALLOPURINOL (ZYLOPRIM) [Concomitant]
  5. VALIUM [Concomitant]
     Active Substance: DIAZEPAM
  6. KEYTRUDA [Suspect]
     Active Substance: PEMBROLIZUMAB
     Indication: TRANSITIONAL CELL CANCER OF THE RENAL PELVIS AND URETER
     Route: 042
     Dates: start: 20151001, end: 20151223
  7. OXYCODONE ER (OXYCONTIN) [Concomitant]
  8. LORAZEPAM. [Concomitant]
     Active Substance: LORAZEPAM
  9. BENADRYL [Concomitant]
     Active Substance: DIPHENHYDRAMINE HYDROCHLORIDE
  10. NEURONTIN [Concomitant]
     Active Substance: GABAPENTIN
  11. TIZANIDINE. [Concomitant]
     Active Substance: TIZANIDINE
  12. AMBIEN [Concomitant]
     Active Substance: ZOLPIDEM TARTRATE

REACTIONS (12)
  - Hyponatraemia [None]
  - Muscular weakness [None]
  - Musculoskeletal pain [None]
  - Pain [None]
  - Muscle spasms [None]
  - Malignant neoplasm progression [None]
  - Thrombocytopenia [None]
  - Flank pain [None]
  - Pulmonary mass [None]
  - Lipoma [None]
  - Polyneuropathy [None]
  - Headache [None]

NARRATIVE: CASE EVENT DATE: 20160715
